FAERS Safety Report 19310467 (Version 1)
Quarter: 2021Q2

REPORT INFORMATION
  Report Type: Spontaneous
  Country: CN (occurrence: CN)
  Receive Date: 20210526
  Receipt Date: 20210526
  Transmission Date: 20210717
  Serious: Yes (Other)
  Sender: FDA-Public Use
  Company Number: CN-ROCHE-2834152

PATIENT
  Age: 65 Year
  Sex: Female

DRUGS (3)
  1. METHOTREXATE. [Concomitant]
     Active Substance: METHOTREXATE
     Indication: CENTRAL NERVOUS SYSTEM LYMPHOMA
     Dosage: 2 G/M2 ON DAY 1
  2. MABTHERA [Suspect]
     Active Substance: RITUXIMAB
     Indication: CENTRAL NERVOUS SYSTEM LYMPHOMA
     Dosage: ON DAY 1
     Route: 065
  3. CALCIUM FOLINATE [Concomitant]
     Active Substance: LEUCOVORIN CALCIUM
     Indication: CENTRAL NERVOUS SYSTEM LYMPHOMA

REACTIONS (6)
  - Pneumonia [Recovering/Resolving]
  - Tongue ulceration [Recovering/Resolving]
  - Gastrointestinal haemorrhage [Recovering/Resolving]
  - Myelosuppression [Recovering/Resolving]
  - Liver injury [Recovering/Resolving]
  - Mouth ulceration [Recovering/Resolving]
